FAERS Safety Report 9113338 (Version 1)
Quarter: 2013Q1

REPORT INFORMATION
  Report Type: Spontaneous
  Country: US (occurrence: US)
  Receive Date: 20130211
  Receipt Date: 20130211
  Transmission Date: 20140127
  Serious: No
  Sender: FDA-Public Use
  Company Number: US-009507513-1301USA014292

PATIENT
  Sex: 0
  Weight: 82 kg

DRUGS (2)
  1. IMPLANON [Suspect]
     Dosage: 1 ROD/EVERY THREE YEARS
     Route: 059
     Dates: start: 20130128, end: 20130128
  2. IMPLANON [Suspect]
     Dosage: 1 DF, EVERY THREE YEARS
     Route: 059
     Dates: start: 20130128

REACTIONS (2)
  - Device kink [Unknown]
  - No adverse event [Unknown]
